FAERS Safety Report 9494004 (Version 2)
Quarter: 2014Q3

REPORT INFORMATION
  Report Type: Report from Study
  Country: DE (occurrence: DE)
  Receive Date: 20130903
  Receipt Date: 20140708
  Transmission Date: 20150326
  Serious: Yes (Other)
  Sender: FDA-Public Use
  Company Number: DE-ROCHE-1268385

PATIENT
  Age: 63 Year
  Sex: Male

DRUGS (3)
  1. PEGINTERFERON ALFA-2A [Suspect]
     Active Substance: PEGINTERFERON ALFA-2A
     Indication: HEPATITIS C
     Route: 065
  2. TELAPREVIR [Suspect]
     Active Substance: TELAPREVIR
     Indication: HEPATITIS C
     Route: 065
  3. RIBAVIRIN. [Suspect]
     Active Substance: RIBAVIRIN
     Indication: HEPATITIS C
     Route: 065

REACTIONS (8)
  - Pancytopenia [Unknown]
  - Pruritus [Unknown]
  - Anaemia [Unknown]
  - Fatigue [Unknown]
  - Hepatic failure [Unknown]
  - Varices oesophageal [Unknown]
  - Myalgia [Unknown]
  - Hepatitis C [Unknown]
